FAERS Safety Report 8953926 (Version 1)
Quarter: 2012Q4

REPORT INFORMATION
  Report Type: 
  Country: US (occurrence: US)
  Receive Date: 20121206
  Receipt Date: 20121206
  Transmission Date: 20130627
  Serious: No
  Sender: FDA-Public Use
  Company Number: US-009507513-1212USA001224

PATIENT
  Sex: Female

DRUGS (3)
  1. EMEND [Suspect]
     Indication: CHEMOTHERAPY
     Dosage: 1 DF, qd
     Route: 048
  2. HEXADROL TABLETS [Concomitant]
  3. ZOFRAN [Concomitant]

REACTIONS (1)
  - Headache [Recovered/Resolved]
